FAERS Safety Report 21494287 (Version 2)
Quarter: 2022Q4

REPORT INFORMATION
  Report Type: Report from Study
  Country: DE (occurrence: DE)
  Receive Date: 20221021
  Receipt Date: 20221202
  Transmission Date: 20230113
  Serious: Yes (Death)
  Sender: FDA-Public Use
  Company Number: DE-ALCEDIS-CEMIAE253

PATIENT
  Sex: Male

DRUGS (1)
  1. CEMIPLIMAB [Suspect]
     Active Substance: CEMIPLIMAB
     Indication: Squamous cell carcinoma of skin
     Dosage: 350 MG, Q3W
     Dates: start: 20220711

REACTIONS (2)
  - Bronchitis [Fatal]
  - COVID-19 [Fatal]

NARRATIVE: CASE EVENT DATE: 20220812
